FAERS Safety Report 4790043-0 (Version None)
Quarter: 2005Q4

REPORT INFORMATION
  Report Type: 
  Country: None (occurrence: None)
  Receive Date: 20051006
  Receipt Date: 20050928
  Transmission Date: 20060501
  Serious: Yes (Hospitalization, Other)
  Sender: FDA-Public Use
  Company Number: BR-JNJFOC-20051000692

PATIENT
  Age: 4 Year
  Sex: Male
  Weight: 20 kg

DRUGS (2)
  1. HALDOL [Suspect]
     Dosage: (1 TABLET=5 MG)
     Route: 048
  2. LEVOMEPROMAZINE [Suspect]
     Route: 048

REACTIONS (2)
  - ACCIDENTAL DRUG INTAKE BY CHILD [None]
  - SOMNOLENCE [None]
